FAERS Safety Report 9775164 (Version 1)
Quarter: 2013Q4

REPORT INFORMATION
  Report Type: Spontaneous
  Country: US (occurrence: None)
  Receive Date: 20131218
  Receipt Date: 20131218
  Transmission Date: 20140711
  Serious: Yes (Hospitalization)
  Sender: FDA-Public Use
  Company Number: IMP_06913_2013

PATIENT
  Age: 28 Year
  Sex: Female

DRUGS (2)
  1. DIGOXIN [Suspect]
     Indication: ABORTION
     Dosage: 5 MG, SINGLE DOSE VAGINAL)
     Route: 067
  2. PROSTAGLANDIN E2 [Concomitant]

REACTIONS (11)
  - Respiratory failure [None]
  - Sinus bradycardia [None]
  - Hyperkalaemia [None]
  - Malaise [None]
  - Asthenia [None]
  - Palpitations [None]
  - Blood pressure increased [None]
  - Sinus tachycardia [None]
  - Toxicity to various agents [None]
  - Paralysis flaccid [None]
  - Maternal exposure during pregnancy [None]
